FAERS Safety Report 24029877 (Version 1)
Quarter: 2024Q2

REPORT INFORMATION
  Report Type: Spontaneous
  Country: US (occurrence: US)
  Receive Date: 20240628
  Receipt Date: 20240628
  Transmission Date: 20240716
  Serious: Yes (Other)
  Sender: FDA-Public Use
  Company Number: US-INCYTE CORPORATION-2024IN006794

PATIENT

DRUGS (1)
  1. OPZELURA [Suspect]
     Active Substance: RUXOLITINIB PHOSPHATE
     Dosage: 1.5 PERCENT, BID (60 GM) (APPLY A THIN LAYER TO AFFECTED AREAS ON THE ARMS AND BACK TWICE)
     Route: 061
     Dates: start: 202406

REACTIONS (1)
  - Crohn^s disease [Unknown]
